FAERS Safety Report 9803112 (Version 1)
Quarter: 2014Q1

REPORT INFORMATION
  Report Type: Spontaneous
  Country: US (occurrence: None)
  Receive Date: 20140107
  Receipt Date: 20140107
  Transmission Date: 20141002
  Serious: Yes (Life-Threatening, Hospitalization)
  Sender: FDA-Public Use
  Company Number: None

PATIENT
  Age: 33 Year
  Sex: Female
  Weight: 63.96 kg

DRUGS (1)
  1. ADVAIR HFA [Suspect]
     Indication: ASTHMA
     Dosage: 2 SPRAYS 2XDAYS FOUR TIMES DAILY INHALATION
     Route: 055
     Dates: start: 20131223, end: 20140103

REACTIONS (2)
  - Anaphylactic reaction [None]
  - Reaction to drug excipients [None]
